FAERS Safety Report 10583351 (Version 2)
Quarter: 2014Q4

REPORT INFORMATION
  Report Type: Report from Study
  Country: CA (occurrence: CA)
  Receive Date: 20141114
  Receipt Date: 20141114
  Transmission Date: 20150529
  Serious: Yes (Other)
  Sender: FDA-Public Use
  Company Number: CA-AMGEN-CANSP2013045085

PATIENT
  Age: 60 Year
  Sex: Female

DRUGS (22)
  1. METHOTREXATE (METHOTREXATE SODIUM) [Concomitant]
     Active Substance: METHOTREXATE SODIUM
     Dosage: UNK
  2. ELAVIL [Concomitant]
     Active Substance: AMITRIPTYLINE HYDROCHLORIDE
     Dosage: 1/2 A TABLET
  3. FOLIC ACID. [Concomitant]
     Active Substance: FOLIC ACID
     Dosage: UNK
  4. CETAPHIL                           /00498501/ [Concomitant]
     Dosage: UNK
  5. ENBREL [Suspect]
     Active Substance: ETANERCEPT
     Indication: RHEUMATOID ARTHRITIS
     Dosage: 50 MG, UNK
     Route: 065
     Dates: start: 20121012
  6. ACTONEL [Concomitant]
     Active Substance: RISEDRONATE SODIUM
     Dosage: UNK
  7. ENBREL [Suspect]
     Active Substance: ETANERCEPT
     Dosage: UNK
     Route: 065
  8. PREDNISONE. [Concomitant]
     Active Substance: PREDNISONE
     Dosage: UNK
  9. CALCIUM [Concomitant]
     Active Substance: CALCIUM
     Dosage: UNK
  10. FOLVITE                            /00024201/ [Concomitant]
     Dosage: UNK
  11. CELEBREX [Concomitant]
     Active Substance: CELECOXIB
     Dosage: UNK
  12. APO FENO SUPER [Concomitant]
     Dosage: UNK
  13. ASPIRIN. [Concomitant]
     Active Substance: ASPIRIN
     Dosage: UNK
  14. LEUCOVORIN                         /00566702/ [Concomitant]
     Active Substance: LEUCOVORIN
     Dosage: UNK
  15. VITAMIN B [Concomitant]
     Active Substance: VITAMIN B
     Dosage: UNK
  16. VITAMIN D                          /00107901/ [Concomitant]
     Active Substance: ERGOCALCIFEROL
     Dosage: UNK
  17. ASAFEN                             /01619501/ [Concomitant]
     Dosage: UNK
  18. LACRILUBE [Concomitant]
     Dosage: UNK
  19. PROLIA [Suspect]
     Active Substance: DENOSUMAB
     Indication: PRODUCT USED FOR UNKNOWN INDICATION
     Dosage: UNK
     Route: 065
  20. PANTOLOC                           /01263204/ [Concomitant]
     Active Substance: PANTOPRAZOLE SODIUM
     Dosage: UNK
  21. ESTRIOL [Concomitant]
     Active Substance: ESTRIOL
     Dosage: UNK
  22. PREGABALIN. [Concomitant]
     Active Substance: PREGABALIN
     Dosage: 75 MG, UNK

REACTIONS (38)
  - Epistaxis [Not Recovered/Not Resolved]
  - Eye discharge [Not Recovered/Not Resolved]
  - Arthritis [Not Recovered/Not Resolved]
  - Diarrhoea [Not Recovered/Not Resolved]
  - Headache [Not Recovered/Not Resolved]
  - Hot flush [Not Recovered/Not Resolved]
  - Osteoarthritis [Recovering/Resolving]
  - Nasopharyngitis [Not Recovered/Not Resolved]
  - Cellulitis [Not Recovered/Not Resolved]
  - Injection site pain [Not Recovered/Not Resolved]
  - Gastrointestinal disorder [Not Recovered/Not Resolved]
  - Eye swelling [Not Recovered/Not Resolved]
  - Eye inflammation [Not Recovered/Not Resolved]
  - Burning sensation [Not Recovered/Not Resolved]
  - Dry eye [Recovering/Resolving]
  - Lacrimal duct procedure [Unknown]
  - Eye degenerative disorder [Not Recovered/Not Resolved]
  - Haemoptysis [Not Recovered/Not Resolved]
  - Sjogren^s syndrome [Not Recovered/Not Resolved]
  - Pyrexia [Not Recovered/Not Resolved]
  - Nervous system disorder [Not Recovered/Not Resolved]
  - Conjunctivitis [Not Recovered/Not Resolved]
  - Onychomadesis [Not Recovered/Not Resolved]
  - Faeces soft [Recovering/Resolving]
  - Rhinitis [Not Recovered/Not Resolved]
  - Rhinorrhoea [Not Recovered/Not Resolved]
  - Eyelid margin crusting [Not Recovered/Not Resolved]
  - Visual impairment [Not Recovered/Not Resolved]
  - Nausea [Not Recovered/Not Resolved]
  - Vomiting [Not Recovered/Not Resolved]
  - Infection susceptibility increased [Not Recovered/Not Resolved]
  - Eye irritation [Not Recovered/Not Resolved]
  - Nasal dryness [Not Recovered/Not Resolved]
  - Dysuria [Not Recovered/Not Resolved]
  - Hypoaesthesia [Not Recovered/Not Resolved]
  - Rheumatoid arthritis [Not Recovered/Not Resolved]
  - Eye infection [Not Recovered/Not Resolved]
  - Fatigue [Not Recovered/Not Resolved]

NARRATIVE: CASE EVENT DATE: 201210
